FAERS Safety Report 20964387 (Version 2)
Quarter: 2022Q2

REPORT INFORMATION
  Report Type: Spontaneous
  Country: US (occurrence: US)
  Receive Date: 20220615
  Receipt Date: 20220629
  Transmission Date: 20220720
  Serious: Yes (Hospitalization, Other)
  Sender: FDA-Public Use
  Company Number: US-Blueprint Medicines Corporation-185

PATIENT
  Age: 51 Year
  Sex: Female

DRUGS (1)
  1. AYVAKIT [Suspect]
     Active Substance: AVAPRITINIB
     Indication: Systemic mastocytosis
     Route: 048
     Dates: start: 20200701

REACTIONS (17)
  - Thyroid cancer [Unknown]
  - Neuralgia [Not Recovered/Not Resolved]
  - Neck pain [Not Recovered/Not Resolved]
  - Blood test abnormal [Not Recovered/Not Resolved]
  - Skin disorder [Unknown]
  - Illness [Unknown]
  - Chest pain [Unknown]
  - Pain in jaw [Unknown]
  - Protein total increased [Not Recovered/Not Resolved]
  - Red blood cell count abnormal [Not Recovered/Not Resolved]
  - Blood creatine abnormal [Not Recovered/Not Resolved]
  - Discomfort [Unknown]
  - Pain in extremity [Unknown]
  - Blood calcium decreased [Not Recovered/Not Resolved]
  - Blood parathyroid hormone increased [Unknown]
  - Thyroid disorder [Not Recovered/Not Resolved]
  - Bone lesion [Not Recovered/Not Resolved]

NARRATIVE: CASE EVENT DATE: 20220614
